FAERS Safety Report 5964252-9 (Version None)
Quarter: 2008Q4

REPORT INFORMATION
  Report Type: 
  Country: None (occurrence: None)
  Receive Date: 20081124
  Receipt Date: 20081118
  Transmission Date: 20090506
  Serious: Yes (Other)
  Sender: FDA-Public Use
  Company Number: BR-PFIZER INC-2008097984

PATIENT
  Sex: Female
  Weight: 67 kg

DRUGS (3)
  1. FRONTAL [Suspect]
     Indication: PANIC DISORDER
     Route: 048
  2. LORAZEPAM [Concomitant]
  3. CITALOPRAM HYDROBROMIDE [Concomitant]

REACTIONS (5)
  - ANOREXIA [None]
  - DRUG HYPERSENSITIVITY [None]
  - DRUG WITHDRAWAL SYNDROME [None]
  - GAIT DISTURBANCE [None]
  - LIGAMENT RUPTURE [None]
